FAERS Safety Report 4874843-4 (Version None)
Quarter: 2006Q1

REPORT INFORMATION
  Report Type: 
  Country: None (occurrence: None)
  Receive Date: 20060104
  Receipt Date: 20051223
  Transmission Date: 20060701
  Serious: Yes (Other)
  Sender: FDA-Public Use
  Company Number: 2005172539

PATIENT
  Age: 72 Year
  Sex: Female

DRUGS (2)
  1. CABERGOLINE [Suspect]
     Indication: PARKINSON'S DISEASE
     Dosage: 2 MG (EVERY DAY) ORAL
     Route: 048
     Dates: start: 20050901, end: 20050101
  2. LEVODOPA (LEVODOPA) [Concomitant]

REACTIONS (2)
  - HALLUCINATION [None]
  - IDEAS OF REFERENCE [None]
